FAERS Safety Report 24692260 (Version 4)
Quarter: 2025Q1

REPORT INFORMATION
  Report Type: Spontaneous
  Country: AU (occurrence: AU)
  Receive Date: 20241203
  Receipt Date: 20250326
  Transmission Date: 20250409
  Serious: Yes (Other)
  Sender: MYLAN
  Company Number: AU-MYLANLABS-2024M1106085

PATIENT
  Age: 52 Year
  Sex: Female
  Weight: 102.2 kg

DRUGS (14)
  1. CLOZARIL [Suspect]
     Active Substance: CLOZAPINE
     Indication: Schizophrenia
  2. CLOZARIL [Suspect]
     Active Substance: CLOZAPINE
     Dosage: UNK UNK, BID (50MG MANE, 200MG NOCTE)
     Dates: start: 20241102, end: 20241121
  3. AMLODIPINE [Concomitant]
     Active Substance: AMLODIPINE BESYLATE
     Dosage: 5 MILLIGRAM, AM (MANE)
  4. DOCUSATE SODIUM\SENNOSIDE B [Concomitant]
     Active Substance: DOCUSATE SODIUM\SENNOSIDE B
     Dosage: 2 DOSAGE FORM, BID
  5. LAMOTRIGINE [Concomitant]
     Active Substance: LAMOTRIGINE
     Indication: Mood swings
     Dosage: 100 MILLIGRAM, BID
  6. MOVICOL [Concomitant]
     Active Substance: POLYETHYLENE GLYCOL 3350\POTASSIUM CHLORIDE\SODIUM BICARBONATE\SODIUM CHLORIDE
     Dosage: UNK, BID (1 SACHET)
  7. OLANZAPINE [Concomitant]
     Active Substance: OLANZAPINE
     Indication: Psychotic disorder
     Dosage: 10 MILLIGRAM, BID
  8. PERINDOPRIL [Concomitant]
     Active Substance: PERINDOPRIL
     Dosage: 2.5 MILLIGRAM, AM (MANE)
  9. VALPROATE [Concomitant]
     Active Substance: VALPROIC ACID
     Indication: Mood swings
     Dosage: 500 MILLIGRAM, BID
  10. AMISULPRIDE [Concomitant]
     Active Substance: AMISULPRIDE
  11. ARIPIPRAZOLE [Concomitant]
     Active Substance: ARIPIPRAZOLE
  12. LURASIDONE [Concomitant]
     Active Substance: LURASIDONE
  13. QUETIAPINE [Concomitant]
     Active Substance: QUETIAPINE
  14. LITHIUM [Concomitant]
     Active Substance: LITHIUM

REACTIONS (3)
  - Myocarditis [Unknown]
  - Pyrexia [Unknown]
  - Malaise [Unknown]

NARRATIVE: CASE EVENT DATE: 20241101
